FAERS Safety Report 6505412-8 (Version None)
Quarter: 2009Q4

REPORT INFORMATION
  Report Type: 
  Country: None (occurrence: None)
  Receive Date: 20091218
  Receipt Date: 20091210
  Transmission Date: 20100525
  Serious: Yes (Hospitalization)
  Sender: FDA-Public Use
  Company Number: FR-KINGPHARMUSA00001-K200901554

PATIENT
  Age: 89 Year
  Sex: Female

DRUGS (13)
  1. ALTACE [Suspect]
     Indication: HYPERTENSION
     Dosage: 5 MG, QD
     Route: 048
  2. VALSARTAN AND HYDROCHLOROTHIAZIDE [Suspect]
     Dosage: 1 DF, QD
     Route: 048
     Dates: end: 20090625
  3. LASILIX [Suspect]
     Dosage: 40 MG, QD
     Route: 048
  4. PREVISCAN [Concomitant]
     Dosage: 10 MG, QD
  5. NOVOMIX [Concomitant]
     Dosage: 14 IU QAM, 3 IU QPM, UNK
  6. CORDARONE [Concomitant]
     Dosage: 200 MG, QD
  7. IMOVANE [Concomitant]
     Dosage: 1 DF, QD
  8. GAVISCON [Concomitant]
     Dosage: 2 DF, QD
  9. NEXIUM [Concomitant]
     Dosage: 40 MG, QD
  10. LOXEN [Concomitant]
     Dosage: 50 MG, QD
     Route: 048
  11. FOSAMAX [Concomitant]
     Dosage: UNK
  12. DEBRIDAT [Concomitant]
  13. VOGALENE [Concomitant]

REACTIONS (7)
  - DECREASED APPETITE [None]
  - FATIGUE [None]
  - HEADACHE [None]
  - HYPOKALAEMIA [None]
  - HYPONATRAEMIA [None]
  - NAUSEA [None]
  - VOMITING [None]
